FAERS Safety Report 10343299 (Version 6)
Quarter: 2014Q4

REPORT INFORMATION
  Report Type: Report from Study
  Country: US (occurrence: US)
  Receive Date: 20140725
  Receipt Date: 20141120
  Transmission Date: 20150528
  Serious: Yes (Hospitalization, Other)
  Sender: FDA-Public Use
  Company Number: US-BAYER-2014-076549

PATIENT
  Age: 63 Year
  Sex: Female

DRUGS (4)
  1. NEXAVAR [Suspect]
     Active Substance: SORAFENIB
     Indication: MEDULLARY THYROID CANCER
     Dosage: 800 MG, QD
     Route: 048
     Dates: start: 20140712
  2. NEXAVAR [Suspect]
     Active Substance: SORAFENIB
     Indication: MEDULLARY THYROID CANCER
     Dosage: 400 MG, BID
     Route: 048
     Dates: start: 20140523
  3. NEXAVAR [Suspect]
     Active Substance: SORAFENIB
     Indication: MEDULLARY THYROID CANCER
     Dosage: 200MG, 2 TABLETS TWICE DAILY ORAL
     Route: 048
     Dates: start: 20140515, end: 20140519
  4. NEXAVAR [Suspect]
     Active Substance: SORAFENIB
     Indication: MEDULLARY THYROID CANCER
     Dosage: 400 MG, BID
     Route: 048
     Dates: start: 20140703

REACTIONS (26)
  - Decreased appetite [Not Recovered/Not Resolved]
  - Constipation [None]
  - White blood cell count increased [Not Recovered/Not Resolved]
  - Aphagia [Recovered/Resolved]
  - Aspiration pleural cavity [Not Recovered/Not Resolved]
  - Stomatitis [None]
  - Abdominal pain [None]
  - Oesophageal disorder [None]
  - Feeling cold [Not Recovered/Not Resolved]
  - Abdominal distension [Not Recovered/Not Resolved]
  - Foreign body [Recovered/Resolved]
  - Fatigue [None]
  - Back pain [None]
  - Decreased appetite [None]
  - Balance disorder [Not Recovered/Not Resolved]
  - Body temperature increased [Not Recovered/Not Resolved]
  - Wrong technique in drug usage process [None]
  - Stomatitis [None]
  - Adverse drug reaction [None]
  - Pyrexia [Not Recovered/Not Resolved]
  - Asthenia [None]
  - Diarrhoea [Not Recovered/Not Resolved]
  - Rash [Not Recovered/Not Resolved]
  - Oral pain [Not Recovered/Not Resolved]
  - Glossodynia [Not Recovered/Not Resolved]
  - Constipation [Not Recovered/Not Resolved]

NARRATIVE: CASE EVENT DATE: 20140515
